FAERS Safety Report 10512257 (Version 1)
Quarter: 2014Q3

REPORT INFORMATION
  Report Type: Spontaneous
  Country: US (occurrence: None)
  Receive Date: 20140926
  Receipt Date: 20140926
  Transmission Date: 20150326
  Serious: No
  Sender: FDA-Public Use
  Company Number: 1000070104

PATIENT
  Age: 55 Year
  Sex: Female

DRUGS (6)
  1. LEVOTHYROXINE (LEVOTHYROXINE SODIUM) [Concomitant]
  2. FERROUS SULFATE [Concomitant]
     Active Substance: FERROUS SULFATE\FERROUS SULFATE, DRIED
  3. LEVETIRACETAM. [Concomitant]
     Active Substance: LEVETIRACETAM
  4. DOCUSATE SODIUM. [Concomitant]
     Active Substance: DOCUSATE SODIUM
  5. LINZESS [Suspect]
     Active Substance: LINACLOTIDE
     Indication: CONSTIPATION
     Route: 048
     Dates: start: 201408
  6. FUROSEMIDE. [Concomitant]
     Active Substance: FUROSEMIDE

REACTIONS (4)
  - Abdominal pain [None]
  - Abdominal distension [None]
  - Off label use [None]
  - Faeces discoloured [None]

NARRATIVE: CASE EVENT DATE: 201408
